FAERS Safety Report 24566182 (Version 1)
Quarter: 2024Q4

REPORT INFORMATION
  Report Type: Report from Study
  Country: MX (occurrence: MX)
  Receive Date: 20241030
  Receipt Date: 20241030
  Transmission Date: 20250115
  Serious: Yes (Hospitalization)
  Sender: NOVARTIS
  Company Number: MX-002147023-NVSC2024MX191981

PATIENT
  Age: 60 Year
  Sex: Female
  Weight: 52 kg

DRUGS (2)
  1. IMATINIB [Suspect]
     Active Substance: IMATINIB
     Indication: Chronic myeloid leukaemia
     Dosage: 8 DOSAGE FORM, QD
     Route: 048
     Dates: start: 202406, end: 20241002
  2. IMATINIB [Suspect]
     Active Substance: IMATINIB
     Dosage: 4 DOSAGE FORM, QD
     Route: 048
     Dates: start: 20241003, end: 20241008

REACTIONS (8)
  - Platelet count decreased [Recovered/Resolved]
  - Malaise [Unknown]
  - Gait disturbance [Unknown]
  - Hypoacusis [Unknown]
  - Diarrhoea [Recovered/Resolved]
  - Nausea [Recovered/Resolved]
  - Weight decreased [Not Recovered/Not Resolved]
  - Off label use [Unknown]

NARRATIVE: CASE EVENT DATE: 20240901
